FAERS Safety Report 24105475 (Version 1)
Quarter: 2024Q3

REPORT INFORMATION
  Report Type: Spontaneous
  Country: US (occurrence: None)
  Receive Date: 20240716
  Receipt Date: 20240716
  Transmission Date: 20241017
  Serious: Yes (Life-Threatening, Other)
  Sender: Public
  Company Number: None

PATIENT
  Age: 71 Year
  Sex: Female
  Weight: 69.3 kg

DRUGS (1)
  1. REPATHA [Suspect]
     Active Substance: EVOLOCUMAB
     Indication: Blood cholesterol increased
     Dates: start: 20231001, end: 20240322

REACTIONS (7)
  - Cough [None]
  - Dizziness [None]
  - Headache [None]
  - Rhinorrhoea [None]
  - Pain [None]
  - Therapy cessation [None]
  - B-cell lymphoma [None]

NARRATIVE: CASE EVENT DATE: 20240401
